FAERS Safety Report 18689463 (Version 1)
Quarter: 2020Q4

REPORT INFORMATION
  Report Type: Report from Study
  Country: RO (occurrence: RO)
  Receive Date: 20201231
  Receipt Date: 20201231
  Transmission Date: 20210114
  Serious: Yes (Other)
  Sender: FDA-Public Use
  Company Number: RO-AMGEN-ROUSL2020210569

PATIENT
  Age: 64 Year
  Sex: Female

DRUGS (1)
  1. PROLIA [Suspect]
     Active Substance: DENOSUMAB
     Indication: PRODUCT USED FOR UNKNOWN INDICATION
     Dosage: UNK
     Route: 065

REACTIONS (5)
  - Gastric haemorrhage [Unknown]
  - Haematemesis [Unknown]
  - Osteoarthritis [Unknown]
  - Nerve compression [Unknown]
  - Rheumatic disorder [Unknown]

NARRATIVE: CASE EVENT DATE: 2019
